FAERS Safety Report 5377760-9 (Version None)
Quarter: 2007Q3

REPORT INFORMATION
  Report Type: 
  Country: None (occurrence: None)
  Receive Date: 20070703
  Receipt Date: 20070624
  Transmission Date: 20080115
  Serious: Yes (Death, Other)
  Sender: FDA-Public Use
  Company Number: US-PFIZER INC-2007052233

PATIENT
  Sex: Female

DRUGS (2)
  1. CEREBYX [Suspect]
     Indication: CONVULSION
  2. ATIVAN [Concomitant]

REACTIONS (7)
  - AGITATION [None]
  - DRUG INEFFECTIVE [None]
  - EPILEPSY [None]
  - HOT FLUSH [None]
  - HYPERSENSITIVITY [None]
  - OVERDOSE [None]
  - PARALYSIS [None]
